FAERS Safety Report 15985291 (Version 2)
Quarter: 2019Q1

REPORT INFORMATION
  Report Type: Report from Study
  Country: US (occurrence: US)
  Receive Date: 20190220
  Receipt Date: 20190312
  Transmission Date: 20190418
  Serious: No
  Sender: FDA-Public Use
  Company Number: US-IPSEN BIOPHARMACEUTICALS, INC.-2019-02515

PATIENT
  Sex: Male
  Weight: 44.7 kg

DRUGS (4)
  1. INCRELEX [Suspect]
     Active Substance: MECASERMIN
     Indication: BODY HEIGHT BELOW NORMAL
     Route: 058
     Dates: start: 20171207
  2. LORATADINE. [Concomitant]
     Active Substance: LORATADINE
  3. CETRIZINE [Concomitant]
     Active Substance: CETIRIZINE HYDROCHLORIDE
  4. INCRELEX [Suspect]
     Active Substance: MECASERMIN
     Indication: OFF LABEL USE
     Dosage: NOT REPORTED
     Route: 058

REACTIONS (2)
  - Off label use [Unknown]
  - Depression [Recovering/Resolving]
